FAERS Safety Report 6023129-3 (Version None)
Quarter: 2008Q4

REPORT INFORMATION
  Report Type: 
  Country: None (occurrence: None)
  Receive Date: 20081222
  Receipt Date: 20080923
  Transmission Date: 20090506
  Serious: No
  Sender: FDA-Public Use
  Company Number: ALL1-2008-02734

PATIENT
  Age: 8 Year
  Sex: Female
  Weight: 21.8 kg

DRUGS (4)
  1. VYVANSE [Suspect]
     Indication: ATTENTION DEFICIT/HYPERACTIVITY DISORDER
     Dosage: 30 MG, 1X/DAY:QD, ORAL ; 30 MG, 1X/DAY:QD, ORAL
     Route: 048
     Dates: start: 20080901, end: 20080904
  2. VYVANSE [Suspect]
     Indication: ATTENTION DEFICIT/HYPERACTIVITY DISORDER
     Dosage: 30 MG, 1X/DAY:QD, ORAL ; 30 MG, 1X/DAY:QD, ORAL
     Route: 048
     Dates: start: 20080909, end: 20080913
  3. FLONASE [Concomitant]
  4. TOPICAL CREAM FOR ECZEMA CREAM [Concomitant]

REACTIONS (3)
  - ALOPECIA [None]
  - NIGHTMARE [None]
  - RASH MACULAR [None]
